FAERS Safety Report 11678427 (Version 1)
Quarter: 2015Q4

REPORT INFORMATION
  Report Type: Spontaneous
  Country: US (occurrence: US)
  Receive Date: 20151027
  Receipt Date: 20151027
  Transmission Date: 20160304
  Serious: Yes (Hospitalization)
  Sender: FDA-Public Use
  Company Number: US-ELI_LILLY_AND_COMPANY-US201011002337

PATIENT
  Sex: Female

DRUGS (3)
  1. PRAVACOL [Concomitant]
     Active Substance: PRAVASTATIN SODIUM
  2. RESTASIS [Concomitant]
     Active Substance: CYCLOSPORINE
  3. FORTEO [Suspect]
     Active Substance: TERIPARATIDE
     Indication: OSTEOPOROSIS
     Dosage: 20 UG, DAILY (1/D)
     Route: 058

REACTIONS (1)
  - Presyncope [Unknown]
